FAERS Safety Report 5323622-2 (Version None)
Quarter: 2007Q2

REPORT INFORMATION
  Report Type: 
  Country: None (occurrence: None)
  Receive Date: 20070508
  Receipt Date: 20070423
  Transmission Date: 20071010
  Serious: Yes (Hospitalization)
  Sender: FDA-Public Use
  Company Number: 2007000718

PATIENT
  Age: 68 Year
  Sex: Male

DRUGS (13)
  1. ERLOTINIB (TABLET) (ERLOTINIB HCL) [Suspect]
     Indication: NON-SMALL CELL LUNG CANCER
     Dosage: 100 MG (QD) , ORAL
     Route: 048
     Dates: start: 20070319
  2. BEVACIZUMAB (INJECTION FOR INFUSION) [Suspect]
     Indication: NON-SMALL CELL LUNG CANCER
     Dosage: 10 MG/KG (QOW), INTRAVENOUS
     Route: 042
     Dates: start: 20070319
  3. RADIATION THERAPY [Suspect]
     Indication: DRUG USE FOR UNKNOWN INDICATION
  4. PACLITAXEL [Concomitant]
  5. CARBOPLATIN [Concomitant]
  6. FENTANYL CITRATE [Concomitant]
  7. LIDOCAINE [Concomitant]
  8. ZOLPIDEM TARTRATE [Concomitant]
  9. FLUCONAZOLE [Concomitant]
  10. VENLAFAXINE HCL [Concomitant]
  11. OXYCODONE HCL [Concomitant]
  12. EZETIMIBE [Concomitant]
  13. SIMVASTATIN [Concomitant]

REACTIONS (9)
  - COAGULATION FACTOR V LEVEL INCREASED [None]
  - COAGULATION FACTOR VIII LEVEL INCREASED [None]
  - DYSPHAGIA [None]
  - HAEMOPTYSIS [None]
  - OESOPHAGITIS [None]
  - ORAL INTAKE REDUCED [None]
  - PROTHROMBIN LEVEL INCREASED [None]
  - PROTHROMBIN TIME PROLONGED [None]
  - VITAMIN K DEFICIENCY [None]
